FAERS Safety Report 8727016 (Version 3)
Quarter: 2012Q4

REPORT INFORMATION
  Report Type: Report from Study
  Country: GB (occurrence: GB)
  Receive Date: 20120816
  Receipt Date: 20121009
  Transmission Date: 20130627
  Serious: Yes (Other)
  Sender: FDA-Public Use
  Company Number: GB-GLAXOSMITHKLINE-B0678781B

PATIENT
  Age: 87 Year
  Sex: Male
  Weight: 53.3 kg

DRUGS (10)
  1. MELPHALAN [Suspect]
     Indication: MULTIPLE MYELOMA
     Dosage: 12MG Per day
     Dates: start: 20100614
  2. THALIDOMIDE [Suspect]
     Indication: MULTIPLE MYELOMA
     Dosage: 50MG Per day
     Route: 048
     Dates: start: 20100614
  3. PREDNISOLONE [Suspect]
     Indication: MULTIPLE MYELOMA
     Dosage: 125MG Per day
     Dates: start: 20100614
  4. OMEPRAZOLE [Concomitant]
     Indication: PROPHYLAXIS
     Dosage: 20MG Per day
     Dates: start: 20100726
  5. MORPHINE SULFATE [Concomitant]
     Indication: BACK PAIN
     Dosage: 60MG Per day
     Route: 048
     Dates: start: 20100620
  6. ACICLOVIR [Concomitant]
     Indication: PROPHYLAXIS
     Dosage: 800MG Twice per day
     Route: 048
     Dates: start: 20100521
  7. DOMPERIDONE [Concomitant]
     Indication: PROPHYLAXIS OF NAUSEA AND VOMITING
     Dosage: 30MG Three times per day
     Route: 048
     Dates: start: 20110313
  8. PARACETAMOL [Concomitant]
     Indication: BACK PAIN
     Dosage: 4G Four times per day
     Route: 048
     Dates: start: 2010
  9. ZOLEDRONATE [Concomitant]
     Indication: PROPHYLAXIS
     Dosage: 4MG Monthly
     Route: 042
     Dates: start: 20100810
  10. ORAMORPH [Concomitant]
     Indication: BACK PAIN
     Route: 048
     Dates: start: 20100518

REACTIONS (1)
  - Plasmacytoma [Recovered/Resolved]
